FAERS Safety Report 8882469 (Version 1)
Quarter: 2012Q4

REPORT INFORMATION
  Report Type: 
  Country: US (occurrence: US)
  Receive Date: 20121105
  Receipt Date: 20121105
  Transmission Date: 20130627
  Serious: Yes (Other)
  Sender: FDA-Public Use
  Company Number: CHPA2012US022826

PATIENT
  Age: 81 Year
  Sex: Female

DRUGS (2)
  1. THERAPEUTIC MINERAL ICE [Suspect]
     Indication: BACK PAIN
     Dosage: about 1 teaspoon, twice per day as needed
     Route: 061
  2. TYLENOL [Concomitant]
     Dosage: UNK, UNK

REACTIONS (6)
  - Tendon injury [Recovered/Resolved]
  - Neck injury [Not Recovered/Not Resolved]
  - Joint injury [Recovered/Resolved]
  - Post procedural complication [Recovered/Resolved]
  - Road traffic accident [Recovered/Resolved]
  - Off label use [Unknown]
